FAERS Safety Report 9620626 (Version 3)
Quarter: 2014Q1

REPORT INFORMATION
  Report Type: Report from Study
  Country: IN (occurrence: IN)
  Receive Date: 20131015
  Receipt Date: 20140314
  Transmission Date: 20141002
  Serious: Yes (Hospitalization)
  Sender: FDA-Public Use
  Company Number: IN-AMGEN-INDCT2013068433

PATIENT
  Age: 53 Year
  Sex: Male
  Weight: 45 kg

DRUGS (33)
  1. DARBEPOETIN ALFA [Suspect]
     Indication: ANAEMIA OF MALIGNANT DISEASE
     Dosage: 500 MUG, Q3WK
     Route: 065
     Dates: start: 20130724, end: 20130906
  2. FILGRASTIM [Concomitant]
     Indication: PROPHYLAXIS
     Dosage: 300 MUG, UNK
     Dates: start: 20130914, end: 20130917
  3. FILGRASTIM [Concomitant]
     Indication: LEUKOPENIA
  4. GEMCITABINE [Concomitant]
     Dosage: 1000 MG/M2, UNK
     Dates: start: 20130724, end: 20130912
  5. CARBOPLATINE [Concomitant]
     Dosage: 5 UNK, UNK
     Dates: start: 20130724, end: 20130906
  6. BRO-ZEDEX                          /03510101/ [Concomitant]
     Indication: PROPHYLAXIS
     Dosage: 1 UNK, UNK
     Dates: start: 20130724, end: 20130829
  7. GRANISETRON                        /01178102/ [Concomitant]
     Indication: PROPHYLAXIS
     Dosage: UNK
     Dates: start: 20130724, end: 20130914
  8. TAPENTADOL [Concomitant]
     Indication: PROPHYLAXIS
     Dosage: 50 MG, UNK
     Dates: start: 20130731, end: 20130929
  9. MUCAINE                            /00115701/ [Concomitant]
     Indication: PROPHYLAXIS
     Dosage: 2 UNK, TID
     Dates: start: 20130823, end: 20130929
  10. MUCAINE                            /00115701/ [Concomitant]
     Indication: HYPERCHLORHYDRIA
  11. CLAVOX                             /00756801/ [Concomitant]
     Indication: PROPHYLAXIS
     Dosage: 625 MG, BID
     Dates: start: 20130724, end: 20130929
  12. CLAVOX                             /00756801/ [Concomitant]
     Indication: RESPIRATORY TRACT INFECTION
  13. EMANZEN-D [Concomitant]
     Indication: PROPHYLAXIS
     Dosage: 1 UNK, UNK
     Dates: start: 20130816, end: 20130929
  14. ASCORIL [Concomitant]
     Indication: PROPHYLAXIS
     Dosage: 1 UNK, UNK
     Dates: start: 20130906, end: 20130929
  15. TRAMADOL [Concomitant]
     Indication: PROPHYLAXIS
     Dosage: 1 UNK, UNK
     Dates: start: 20130823, end: 20130929
  16. RANTAC [Concomitant]
     Indication: PROPHYLAXIS
     Dosage: 50 MG, UNK
     Dates: start: 20130724, end: 20130912
  17. FOLVITE                            /00024201/ [Concomitant]
     Indication: PROPHYLAXIS
     Dosage: 5 MG, BID
     Dates: start: 20130816, end: 20130929
  18. FOLVITE                            /00024201/ [Concomitant]
     Indication: VITAMIN SUPPLEMENTATION
  19. FOLVITE                            /00024201/ [Concomitant]
     Indication: ASTHENIA
  20. FOLVITE                            /00024201/ [Concomitant]
     Indication: DECREASED APPETITE
  21. BECOZINC                           /07428501/ [Concomitant]
     Indication: PROPHYLAXIS
     Dosage: UNK UNK, QID
     Dates: start: 20130816, end: 20130929
  22. BECOZINC                           /07428501/ [Concomitant]
     Indication: VITAMIN SUPPLEMENTATION
  23. BECOZINC                           /07428501/ [Concomitant]
     Indication: ASTHENIA
  24. BECOZINC                           /07428501/ [Concomitant]
     Indication: DECREASED APPETITE
  25. GLEVO [Concomitant]
     Indication: PROPHYLAXIS
     Dosage: 500 MG, UNK
     Dates: start: 20130731, end: 20130829
  26. DEXA                               /00016001/ [Concomitant]
     Indication: PROPHYLAXIS
     Dosage: 8-16 MG, Q8H
     Dates: start: 20130724, end: 20130929
  27. DEXA                               /00016001/ [Concomitant]
     Indication: BRAIN OEDEMA
  28. LINCTUS CODEINE [Concomitant]
     Indication: PROPHYLAXIS
     Dosage: 1 UNK, UNK
     Dates: start: 20130912, end: 20130929
  29. DUPHALAC                           /00163401/ [Concomitant]
     Indication: PROPHYLAXIS
     Dosage: 2 UNK, UNK
     Dates: start: 20130912, end: 20130929
  30. ANXIT                              /00595201/ [Concomitant]
     Indication: PROPHYLAXIS
     Dosage: 0.5 MG, UNK
     Dates: start: 20130912, end: 20130929
  31. DOMPERIDONE W/PANTOPRAZOLE [Concomitant]
     Indication: PROPHYLAXIS
     Dosage: 40 MG, BID
     Dates: start: 20130724, end: 20130929
  32. ZAMADOL P [Concomitant]
     Indication: PROPHYLAXIS
     Dosage: UNK UNK, BID
     Dates: start: 20130724, end: 20130929
  33. CLONEX                             /00101801/ [Concomitant]
     Indication: ORAL DISCOMFORT
     Dosage: 2 UNK, UNK
     Dates: start: 20130724, end: 20130929

REACTIONS (2)
  - Asthenia [Recovered/Resolved]
  - Decreased appetite [Recovered/Resolved]
